FAERS Safety Report 8368893-3 (Version None)
Quarter: 2012Q2

REPORT INFORMATION
  Report Type: 
  Country: None (occurrence: None)
  Receive Date: 20120516
  Receipt Date: 20120504
  Transmission Date: 20120825
  Serious: Yes (Hospitalization)
  Sender: FDA-Public Use
  Company Number: UTC-018502

PATIENT
  Age: 52 Year
  Sex: Female

DRUGS (1)
  1. REMODULIN [Suspect]
     Indication: PULMONARY ARTERIAL HYPERTENSION
     Dosage: 40.32 UG/KG (0.028 UG/KG, 1 IN 1 MIN, SUBCUTANEOUS
     Route: 058
     Dates: start: 20120215

REACTIONS (1)
  - INFUSION SITE ABSCESS [None]
